FAERS Safety Report 18948039 (Version 1)
Quarter: 2021Q1

REPORT INFORMATION
  Report Type: Spontaneous
  Country: US (occurrence: US)
  Receive Date: 20210226
  Receipt Date: 20210226
  Transmission Date: 20210420
  Serious: No
  Sender: FDA-Public Use
  Company Number: US-TEVA-2021-US-1880423

PATIENT
  Age: 46 Year
  Sex: Female

DRUGS (6)
  1. AUSTEDO [Suspect]
     Active Substance: DEUTETRABENAZINE
     Dosage: 18 MILLIGRAM DAILY;
     Route: 048
  2. RISPERIDONE ORAL TABLET 2 MG [Concomitant]
     Route: 048
  3. TRAZODONE HCL ORAL TABLET 100 MG [Concomitant]
     Route: 048
  4. LISINOPRIL ORAL TABLET 10 MG [Concomitant]
     Route: 048
  5. AUSTEDO [Suspect]
     Active Substance: DEUTETRABENAZINE
     Indication: TARDIVE DYSKINESIA
     Route: 048
     Dates: start: 20210121
  6. D3?50 ORAL CAPSULE 1.25 MG (50000 UT) [Concomitant]
     Route: 048

REACTIONS (1)
  - Dyskinesia [Unknown]

NARRATIVE: CASE EVENT DATE: 202101
